FAERS Safety Report 16261261 (Version 1)
Quarter: 2019Q2

REPORT INFORMATION
  Report Type: Spontaneous
  Country: FR (occurrence: FR)
  Receive Date: 20190501
  Receipt Date: 20190501
  Transmission Date: 20190711
  Serious: Yes (Other)
  Sender: FDA-Public Use
  Company Number: FR-SA-2019SA117553

PATIENT
  Age: 54 Year
  Sex: Female

DRUGS (5)
  1. JANUMET [Concomitant]
     Active Substance: METFORMIN HYDROCHLORIDE\SITAGLIPTIN PHOSPHATE
  2. COUMADINE [Concomitant]
     Active Substance: WARFARIN SODIUM
  3. SOTALEX [Concomitant]
     Active Substance: SOTALOL
  4. AMAREL [Suspect]
     Active Substance: GLIMEPIRIDE
     Dosage: UNK UNK, UNK
     Route: 065
     Dates: start: 20190413, end: 20190421
  5. CRESTOR [Concomitant]
     Active Substance: ROSUVASTATIN CALCIUM

REACTIONS (4)
  - Anaphylactic shock [Recovered/Resolved]
  - Rash generalised [Recovered/Resolved]
  - Respiratory distress [Recovered/Resolved]
  - Hypotension [Recovered/Resolved]

NARRATIVE: CASE EVENT DATE: 20190421
